FAERS Safety Report 19905866 (Version 1)
Quarter: 2021Q3

REPORT INFORMATION
  Report Type: Report from Study
  Country: AT (occurrence: AT)
  Receive Date: 20210930
  Receipt Date: 20210930
  Transmission Date: 20211014
  Serious: Yes (Life-Threatening, Hospitalization, Other)
  Sender: FDA-Public Use
  Company Number: AT-TAKEDA-AT201835198

PATIENT
  Age: 59 Year
  Sex: Male
  Weight: 76 kg

DRUGS (6)
  1. NOVALGIN [Concomitant]
     Indication: PERICARDIAL EFFUSION
  2. ADVATE [Suspect]
     Active Substance: ANTIHEMOPHILIC FACTOR, HUMAN RECOMBINANT
     Indication: HAEMARTHROSIS
     Dosage: 2000 IU, UNK
     Route: 042
     Dates: start: 20180730
  3. ADVATE [Suspect]
     Active Substance: ANTIHEMOPHILIC FACTOR, HUMAN RECOMBINANT
     Indication: HAEMARTHROSIS
     Dosage: 2000 IU, UNK
     Route: 042
     Dates: start: 20180730
  4. NOVALGIN [Concomitant]
     Indication: ANGINA PECTORIS
  5. ADVATE [Suspect]
     Active Substance: ANTIHEMOPHILIC FACTOR, HUMAN RECOMBINANT
     Indication: HAEMARTHROSIS
     Dosage: 2000 IU, UNK
     Route: 042
     Dates: start: 20180730
  6. EXFORGE HCT [Concomitant]
     Active Substance: AMLODIPINE BESYLATE\HYDROCHLOROTHIAZIDE\VALSARTAN
     Indication: HYPERTENSION

REACTIONS (1)
  - Pericardial effusion [Recovered/Resolved]

NARRATIVE: CASE EVENT DATE: 20180803
